FAERS Safety Report 6221106-0 (Version None)
Quarter: 2009Q2

REPORT INFORMATION
  Report Type: 
  Country: None (occurrence: None)
  Receive Date: 20090610
  Receipt Date: 20090603
  Transmission Date: 20091009
  Serious: Yes (Life-Threatening)
  Sender: FDA-Public Use
  Company Number: B0577034A

PATIENT
  Age: 60 Year
  Sex: Male

DRUGS (6)
  1. AUGMENTIN '125' [Suspect]
     Indication: PROPHYLAXIS
     Route: 042
     Dates: start: 20080221
  2. MIDAZOLAM HCL [Concomitant]
     Route: 065
     Dates: start: 20080221
  3. LATEX [Concomitant]
     Route: 065
     Dates: start: 20080221
  4. ETOMIDATE [Concomitant]
     Route: 065
     Dates: start: 20080221
  5. SUFENTANIL [Concomitant]
     Route: 065
     Dates: start: 20080221
  6. CURARE [Concomitant]
     Route: 065
     Dates: start: 20080221

REACTIONS (3)
  - ANAPHYLACTIC SHOCK [None]
  - DRUG HYPERSENSITIVITY [None]
  - MYOCARDIAL INFARCTION [None]
